FAERS Safety Report 10446880 (Version 3)
Quarter: 2014Q4

REPORT INFORMATION
  Report Type: Spontaneous
  Country: JP (occurrence: JP)
  Receive Date: 20140911
  Receipt Date: 20141001
  Transmission Date: 20150528
  Serious: Yes (Hospitalization)
  Sender: FDA-Public Use
  Company Number: JP-BAYER-2014-125895

PATIENT
  Age: 72 Year
  Sex: Male
  Weight: 70 kg

DRUGS (8)
  1. BAYASPIRIN [Suspect]
     Active Substance: ASPIRIN
     Indication: THROMBOSIS PROPHYLAXIS
     Dosage: 100 MG, QD
     Route: 048
     Dates: start: 20140810, end: 20140821
  2. ADALAT CC [Suspect]
     Active Substance: NIFEDIPINE
     Indication: BLOOD PRESSURE MANAGEMENT
     Dosage: 20 MG, QD
     Route: 048
     Dates: start: 20140812, end: 20140821
  3. NICORANDIL [Concomitant]
     Active Substance: NICORANDIL
     Dosage: UNK
  4. NEXIUM [Concomitant]
     Active Substance: ESOMEPRAZOLE MAGNESIUM
     Dosage: UNK
     Route: 048
  5. PENTCILLIN [Suspect]
     Active Substance: PIPERACILLIN SODIUM
     Indication: POST PROCEDURAL INFECTION
     Dosage: 4 G, QD
     Route: 041
     Dates: start: 20140807, end: 20140820
  6. HEPARIN SODIUM. [Concomitant]
     Active Substance: HEPARIN SODIUM
     Dosage: UNK
     Dates: end: 20140820
  7. WARFARIN [Concomitant]
     Active Substance: WARFARIN
     Dosage: UNK
     Route: 048
  8. LIVALO [Concomitant]
     Active Substance: PITAVASTATIN CALCIUM
     Dosage: UNK
     Route: 048

REACTIONS (1)
  - Thrombocytopenia [Recovered/Resolved]

NARRATIVE: CASE EVENT DATE: 20140820
